FAERS Safety Report 7771376-2 (Version None)
Quarter: 2011Q3

REPORT INFORMATION
  Report Type: 
  Country: None (occurrence: None)
  Receive Date: 20110922
  Receipt Date: 20110912
  Transmission Date: 20111222
  Serious: Yes (Other)
  Sender: FDA-Public Use
  Company Number: GB-JNJFOC-20110906740

PATIENT
  Sex: Female

DRUGS (2)
  1. NICORETTE [Suspect]
     Route: 065
  2. NICORETTE [Suspect]
     Indication: PRODUCT USED FOR UNKNOWN INDICATION
     Route: 065

REACTIONS (2)
  - PAIN [None]
  - APPLICATION SITE BURN [None]
